FAERS Safety Report 10233393 (Version 1)
Quarter: 2014Q2

REPORT INFORMATION
  Report Type: Report from Study
  Country: IN (occurrence: IN)
  Receive Date: 20140612
  Receipt Date: 20140612
  Transmission Date: 20141212
  Serious: Yes (Death)
  Sender: FDA-Public Use
  Company Number: IN-SA-2014SA076831

PATIENT
  Sex: 0

DRUGS (2)
  1. PENTOXIFYLLINE [Suspect]
     Indication: HEPATITIS ALCOHOLIC
     Route: 048
  2. PLACEBO [Suspect]
     Indication: HEPATITIS ALCOHOLIC
     Route: 048

REACTIONS (1)
  - Sepsis [Fatal]
